FAERS Safety Report 7639223-7 (Version None)
Quarter: 2011Q3

REPORT INFORMATION
  Report Type: 
  Country: None (occurrence: None)
  Receive Date: 20110727
  Receipt Date: 20110720
  Transmission Date: 20111222
  Serious: Yes (Hospitalization, Other)
  Sender: FDA-Public Use
  Company Number: US-ABBOTT-11P-163-0841137-00

PATIENT
  Sex: Male
  Weight: 124.4 kg

DRUGS (13)
  1. SYNTHROID [Concomitant]
     Indication: HYPOTHYROIDISM
  2. GLUCOSAMINE [Concomitant]
     Indication: ANKYLOSING SPONDYLITIS
  3. PERCOCET [Concomitant]
     Indication: ANKYLOSING SPONDYLITIS
  4. VITAMIN D [Concomitant]
     Indication: VITAMIN SUPPLEMENTATION
  5. GLUCOSAMINE [Concomitant]
     Indication: PSORIATIC ARTHROPATHY
  6. METHOTREXATE [Concomitant]
     Indication: PSORIATIC ARTHROPATHY
  7. METHOTREXATE [Concomitant]
     Indication: ANKYLOSING SPONDYLITIS
  8. MS CONTIN [Concomitant]
     Indication: ANKYLOSING SPONDYLITIS
  9. RENVELA [Concomitant]
     Indication: HYPERTENSION
  10. GENERIC XANAX [Concomitant]
     Indication: INSOMNIA
  11. HUMIRA [Suspect]
     Indication: ANKYLOSING SPONDYLITIS
     Route: 058
     Dates: start: 20100101, end: 20110620
  12. PERCOCET [Concomitant]
     Indication: ARTHRALGIA
  13. MS CONTIN [Concomitant]
     Indication: ARTHRALGIA

REACTIONS (11)
  - BRAIN OEDEMA [None]
  - RENAL DISORDER [None]
  - CHEST X-RAY ABNORMAL [None]
  - C-REACTIVE PROTEIN INCREASED [None]
  - PNEUMONIA [None]
  - BLOOD KETONE BODY [None]
  - VIRAL INFECTION [None]
  - HISTOPLASMOSIS [None]
  - PYREXIA [None]
  - MALAISE [None]
  - DIALYSIS [None]
